FAERS Safety Report 10073076 (Version 1)
Quarter: 2014Q2

REPORT INFORMATION
  Report Type: Report from Study
  Country: IN (occurrence: IN)
  Receive Date: 20140411
  Receipt Date: 20140411
  Transmission Date: 20141212
  Serious: Yes (Other)
  Sender: FDA-Public Use
  Company Number: PHHY2014IN040743

PATIENT
  Sex: 0

DRUGS (1)
  1. TASIGNA [Suspect]
     Dosage: UNK

REACTIONS (1)
  - Bone tuberculosis [Unknown]
